FAERS Safety Report 4890961-9 (Version None)
Quarter: 2006Q1

REPORT INFORMATION
  Report Type: 
  Country: None (occurrence: None)
  Receive Date: 20060123
  Receipt Date: 20060109
  Transmission Date: 20060701
  Serious: Yes (Other)
  Sender: FDA-Public Use
  Company Number: 2006005160

PATIENT
  Sex: Male
  Weight: 70.3075 kg

DRUGS (9)
  1. NEURONTIN [Suspect]
     Indication: COMPLEX REGIONAL PAIN SYNDROME
     Dosage: ORAL
     Route: 048
     Dates: start: 20030101
  2. LYRICA [Suspect]
     Indication: COMPLEX REGIONAL PAIN SYNDROME
     Dosage: 150 MG (75 MG, 2 IN 1 D), ORAL
     Route: 048
     Dates: start: 20050101
  3. REMERON [Concomitant]
  4. TRAZODONE (TRAZODONE) [Concomitant]
  5. KLONOPIN [Concomitant]
  6. EFFEXOR [Suspect]
     Indication: COMPLEX REGIONAL PAIN SYNDROME
     Dosage: ORAL
     Route: 048
     Dates: start: 20030101, end: 20030101
  7. MORPHINE [Suspect]
     Indication: COMPLEX REGIONAL PAIN SYNDROME
  8. TRILEPTAL [Suspect]
     Indication: COMPLEX REGIONAL PAIN SYNDROME
     Dosage: 1500 MG (300 MG), ORAL
     Route: 048
     Dates: start: 20050101
  9. ANTIEPILEPTICS (ANTIEPILEPTICS) [Suspect]
     Indication: COMPLEX REGIONAL PAIN SYNDROME

REACTIONS (11)
  - COMPLEX REGIONAL PAIN SYNDROME [None]
  - CONDITION AGGRAVATED [None]
  - FEELING ABNORMAL [None]
  - HEADACHE [None]
  - HYPERHIDROSIS [None]
  - MYOCLONUS [None]
  - OESOPHAGEAL ACHALASIA [None]
  - PARAESTHESIA [None]
  - PRURITUS [None]
  - SEDATION [None]
  - THERAPY NON-RESPONDER [None]
